FAERS Safety Report 17898610 (Version 2)
Quarter: 2020Q3

REPORT INFORMATION
  Report Type: Spontaneous
  Country: US (occurrence: US)
  Receive Date: 20200615
  Receipt Date: 20200720
  Transmission Date: 20201103
  Serious: Yes (Other)
  Sender: FDA-Public Use
  Company Number: US-B.I. PHARMACEUTICALS,INC./RIDGEFIELD-2020-US-028881

PATIENT
  Sex: Female

DRUGS (5)
  1. LYRICA [Concomitant]
     Active Substance: PREGABALIN
     Indication: FIBROMYALGIA
     Dosage: 25MG ONCE DAILY
     Route: 065
  2. MICARDIS HCT [Suspect]
     Active Substance: HYDROCHLOROTHIAZIDE\TELMISARTAN
     Indication: HYPERTENSION
     Dosage: 40?12.5MG ONCE DAILY
     Route: 065
     Dates: start: 2010, end: 202005
  3. METFORMIN [Concomitant]
     Active Substance: METFORMIN HYDROCHLORIDE
     Indication: PROPHYLAXIS
     Dosage: 500MG ONCE DAILY
     Route: 065
     Dates: start: 2020
  4. ACETAMINOPHEN;HYDROCODONE [Concomitant]
     Active Substance: ACETAMINOPHEN\HYDROCODONE
     Indication: PAIN
     Dosage: 5?325MG ONCE DAILY AS NEEDED
     Route: 065
  5. NASONEX [Concomitant]
     Active Substance: MOMETASONE FUROATE
     Indication: HYPERSENSITIVITY
     Dosage: ONE SPRAY EACH NOSTRIL, BID
     Route: 065

REACTIONS (2)
  - Hypertension [Not Recovered/Not Resolved]
  - Hepatic cirrhosis [Unknown]

NARRATIVE: CASE EVENT DATE: 2020
